FAERS Safety Report 11312181 (Version 6)
Quarter: 2015Q3

REPORT INFORMATION
  Report Type: Spontaneous
  Country: US (occurrence: US)
  Receive Date: 20150727
  Receipt Date: 20150826
  Transmission Date: 20151125
  Serious: Yes (Other)
  Sender: FDA-Public Use
  Company Number: CHPA2015US008657

PATIENT
  Age: 65 Year
  Sex: Female
  Weight: 71.2 kg

DRUGS (8)
  1. VOLTAREN [Suspect]
     Active Substance: DICLOFENAC SODIUM
     Indication: ARTHRALGIA
     Dosage: UNK
     Route: 065
     Dates: start: 2013, end: 2013
  2. ALEVE [Suspect]
     Active Substance: NAPROXEN SODIUM
     Indication: PAIN
     Route: 065
  3. PARACETAMOL [Concomitant]
     Active Substance: ACETAMINOPHEN
     Indication: ARTHRITIS
     Dosage: UNK, PRN
     Route: 065
  4. VOLTAREN [Suspect]
     Active Substance: DICLOFENAC SODIUM
     Dosage: UNK, BID TO TID
     Route: 061
  5. VOLTAREN [Suspect]
     Active Substance: DICLOFENAC SODIUM
     Indication: ARTHRITIS
     Dosage: 2G, BID PRN
     Route: 061
     Dates: start: 201507
  6. VOLTAREN [Suspect]
     Active Substance: DICLOFENAC SODIUM
     Indication: INFLAMMATION
     Dosage: 2 G, BID PRN
     Route: 061
     Dates: start: 20150515, end: 201507
  7. VOLTAREN [Suspect]
     Active Substance: DICLOFENAC SODIUM
     Indication: INFLAMMATION
  8. VICODIN [Concomitant]
     Active Substance: ACETAMINOPHEN\HYDROCODONE BITARTRATE
     Indication: ARTHRITIS
     Dosage: UNK UNK, BID PRN
     Route: 065

REACTIONS (9)
  - Abdominal pain upper [Recovered/Resolved]
  - Product use issue [Unknown]
  - Irritable bowel syndrome [Not Recovered/Not Resolved]
  - Underdose [Unknown]
  - Hypersensitivity [Unknown]
  - Pain in extremity [Recovering/Resolving]
  - Meniscus injury [Recovering/Resolving]
  - Abdominal discomfort [Recovered/Resolved]
  - Inappropriate schedule of drug administration [Unknown]

NARRATIVE: CASE EVENT DATE: 2013
